FAERS Safety Report 17654214 (Version 3)
Quarter: 2020Q3

REPORT INFORMATION
  Report Type: Report from Study
  Country: US (occurrence: US)
  Receive Date: 20200410
  Receipt Date: 20200819
  Transmission Date: 20201102
  Serious: Yes (Hospitalization, Other)
  Sender: FDA-Public Use
  Company Number: US-TEVA-2020-US-1219694

PATIENT
  Age: 62 Year
  Sex: Female
  Weight: 87 kg

DRUGS (21)
  1. SARNA [Concomitant]
  2. PROSCAR [Concomitant]
     Active Substance: FINASTERIDE
  3. OXYCODONE HYDROCHLORIDE. [Concomitant]
     Active Substance: OXYCODONE HYDROCHLORIDE
  4. ASP2215 [Suspect]
     Active Substance: GILTERITINIB
     Dosage: 120 MILLIGRAM DAILY;
     Route: 048
     Dates: start: 20190103, end: 20190114
  5. ASP2215 [Suspect]
     Active Substance: GILTERITINIB
     Dosage: 120 MILLIGRAM DAILY;
     Route: 048
     Dates: start: 20190117
  6. CYTARABINE. [Suspect]
     Active Substance: CYTARABINE
     Indication: ACUTE MYELOID LEUKAEMIA
     Route: 042
  7. ASP2215 [Suspect]
     Active Substance: GILTERITINIB
     Dosage: 120 MILLIGRAM DAILY;
     Route: 048
     Dates: start: 20181011, end: 20181019
  8. ASP2215 [Suspect]
     Active Substance: GILTERITINIB
     Dosage: 120 MILLIGRAM DAILY;
     Route: 048
     Dates: start: 20181022
  9. TAMSULOSIN [Concomitant]
     Active Substance: TAMSULOSIN
  10. VANCOMYCIN HYDROCHLORIDE. [Concomitant]
     Active Substance: VANCOMYCIN HYDROCHLORIDE
  11. ASP2215 [Suspect]
     Active Substance: GILTERITINIB
     Dosage: 120 MILLIGRAM DAILY;
     Route: 048
     Dates: start: 20190102
  12. NORVASC [Concomitant]
     Active Substance: AMLODIPINE BESYLATE
     Dates: start: 20180706
  13. DIFLUCAN [Concomitant]
     Active Substance: FLUCONAZOLE
     Dates: start: 20180618
  14. HEPARIN LOCK FLUSH [Concomitant]
     Active Substance: HEPARIN SODIUM
  15. IDARUBICIN [Suspect]
     Active Substance: IDARUBICIN
     Indication: ACUTE MYELOID LEUKAEMIA
     Route: 042
  16. ASP2215 [Suspect]
     Active Substance: GILTERITINIB
     Indication: ACUTE MYELOID LEUKAEMIA
     Dosage: 120 MILLIGRAM DAILY;
     Route: 048
     Dates: start: 20180628
  17. SODIUM CHLORIDE. [Concomitant]
     Active Substance: SODIUM CHLORIDE
  18. ZOVIRAX [Concomitant]
     Active Substance: ACYCLOVIR
     Dates: start: 20180618
  19. LEVOFLOXACIN. [Concomitant]
     Active Substance: LEVOFLOXACIN
  20. METOPROLOL TARTRATE. [Concomitant]
     Active Substance: METOPROLOL TARTRATE
  21. SIROLIMUS. [Concomitant]
     Active Substance: SIROLIMUS

REACTIONS (5)
  - Osteomyelitis [Recovered/Resolved]
  - Cellulitis [Recovered/Resolved]
  - Diarrhoea [Recovered/Resolved]
  - Bacteraemia [Recovered/Resolved]
  - Tachycardia [Recovered/Resolved]

NARRATIVE: CASE EVENT DATE: 20180706
